FAERS Safety Report 25041097 (Version 1)
Quarter: 2025Q1

REPORT INFORMATION
  Report Type: Spontaneous
  Country: US (occurrence: None)
  Receive Date: 20250304
  Receipt Date: 20250304
  Transmission Date: 20250409
  Serious: Yes (Life-Threatening, Hospitalization, Disabling)
  Sender: FDA-CTU
  Company Number: None

PATIENT
  Age: 74 Year
  Sex: Female
  Weight: 38.7 kg

DRUGS (12)
  1. SUGAMMADEX [Suspect]
     Active Substance: SUGAMMADEX
     Indication: Paralysis
     Dates: start: 20250214, end: 20250214
  2. AMLODIPINE [Concomitant]
     Active Substance: AMLODIPINE BESYLATE
     Dates: start: 20250210, end: 20250210
  3. HYDROMORPHONE [Concomitant]
     Active Substance: HYDROMORPHONE
     Dates: start: 20250214, end: 20250214
  4. PROPOFOL [Concomitant]
     Active Substance: PROPOFOL
     Dates: start: 20250214, end: 20250214
  5. FENTANYL [Concomitant]
     Active Substance: FENTANYL
     Dates: start: 20250214, end: 20250214
  6. ROCURONIUM [Concomitant]
     Active Substance: ROCURONIUM BROMIDE
     Dates: start: 20250214, end: 20250214
  7. EPHEDRINE [Concomitant]
     Active Substance: EPHEDRINE
     Dates: start: 20250214, end: 20250214
  8. DEXAMETHASONE [Concomitant]
     Active Substance: DEXAMETHASONE
     Dates: start: 20250214, end: 20250214
  9. LIDOCAINE [Concomitant]
     Active Substance: LIDOCAINE
     Dates: start: 20250214, end: 20250214
  10. METOPROLOL [Concomitant]
     Active Substance: METOPROLOL
     Dates: start: 20250214, end: 20250214
  11. CALCIUM CHLORIDE [Concomitant]
     Active Substance: CALCIUM CHLORIDE
     Dates: start: 20250214, end: 20250214
  12. VANCOMYCIN [Concomitant]
     Active Substance: VANCOMYCIN
     Dates: start: 20250214, end: 20250214

REACTIONS (11)
  - Occipitocervical fusion [None]
  - Obstructive airways disorder [None]
  - Swollen tongue [None]
  - Anaphylactic reaction [None]
  - Oral contusion [None]
  - Drug ineffective [None]
  - Macroglossia [None]
  - Deep vein thrombosis [None]
  - Pneumonia [None]
  - Clostridium difficile infection [None]
  - Angioedema [None]

NARRATIVE: CASE EVENT DATE: 20250214
